FAERS Safety Report 7640655-1 (Version None)
Quarter: 2011Q3

REPORT INFORMATION
  Report Type: 
  Country: None (occurrence: None)
  Receive Date: 20110728
  Receipt Date: 20101216
  Transmission Date: 20111222
  Serious: Yes (Death, Other)
  Sender: FDA-Public Use
  Company Number: US-BAYER-201011415NA

PATIENT
  Age: 48 Year
  Sex: Male
  Weight: 117.1 kg

DRUGS (45)
  1. TRASYLOL [Suspect]
     Indication: CORONARY ARTERY BYPASS
     Dosage: 200CC, LOADING DOSE
     Route: 042
     Dates: start: 20070423, end: 20070423
  2. COREG [Concomitant]
     Dosage: 12.5 MG, BID
  3. ACETYLSALICYLIC ACID SRT [Concomitant]
     Dosage: 325 MG, QD
     Route: 048
  4. DIGOXIN [Concomitant]
     Dosage: 0.25 MG, QD
     Route: 048
  5. VANCOMYCIN HCL [Concomitant]
     Dosage: 1 G, UNK
     Route: 042
     Dates: start: 20070423, end: 20070425
  6. NITROGLYCERIN [Concomitant]
     Dosage: 5.00MCG/HR
     Route: 042
     Dates: start: 20070221
  7. IMDUR [Concomitant]
     Dosage: 30 MG, QD
     Route: 048
     Dates: start: 20010801
  8. HEPARIN [Concomitant]
     Dosage: 40000 U, TOTAL
     Route: 042
     Dates: start: 20070423
  9. SUFENTA PRESERVATIVE FREE [Concomitant]
     Dosage: 225 ?G, TOTAL
     Route: 042
     Dates: start: 20070423, end: 20070423
  10. ALDACTONE [Concomitant]
     Dosage: 25 MG, QD
     Route: 048
  11. ANGIOMAX [Concomitant]
     Dosage: 19CC, BOLUS
     Route: 042
     Dates: start: 20070223, end: 20070223
  12. FORANE [Concomitant]
     Dosage: TITRATE, INHALED
     Dates: start: 20070423, end: 20070423
  13. PROPOFOL [Concomitant]
     Dosage: TITRATE
     Route: 042
     Dates: start: 20070423
  14. PHENYLEPHRINE HCL [Concomitant]
     Dosage: 100 MG, CARDIOPULMOARY BYPASS
     Dates: start: 20070423, end: 20070423
  15. TRASYLOL [Suspect]
     Dosage: UNK
     Dates: start: 20020506
  16. POTASSIUM CHLORIDE [Concomitant]
     Dosage: 40 MILLIEQUIVALENTS, DAILY
     Route: 048
  17. ETOMIDATE [Concomitant]
     Dosage: 20 MG, UNK
     Route: 042
     Dates: start: 20070423, end: 20070423
  18. NOREPINEPHRINE BITARTRATE [Concomitant]
     Dosage: TITRATE
     Route: 042
     Dates: start: 20070423
  19. OXYCODONE HCL [Concomitant]
     Indication: PROCEDURAL PAIN
     Dosage: UNK
     Dates: start: 20070424
  20. TRASYLOL [Suspect]
     Indication: VASCULAR GRAFT
     Dosage: 50CC/HR, INFUSION
     Dates: start: 20070423, end: 20070423
  21. HEPARIN [Concomitant]
     Dosage: TITRATE
     Route: 042
     Dates: start: 20070418
  22. VERSED [Concomitant]
     Dosage: 6 MG, UNK
     Route: 042
     Dates: start: 20070423, end: 20070423
  23. METHADON AMIDONE HCL TAB [Concomitant]
     Indication: PROCEDURAL PAIN
     Dosage: UNK
     Dates: start: 20070424
  24. NEURONTIN [Concomitant]
     Indication: PROCEDURAL PAIN
     Dosage: UNK
     Dates: start: 20070424
  25. LIPITOR [Concomitant]
     Dosage: 80 MG, QD
  26. NITROGLYCERIN [Concomitant]
     Dosage: 0.4MG, AS NEEDED
     Route: 060
  27. ZESTRIL [Concomitant]
     Dosage: 10 MG, QD
     Route: 048
  28. ZESTRIL [Concomitant]
     Dosage: 5 MG, QD
     Dates: start: 20070424
  29. PLAVIX [Concomitant]
     Dosage: 75 MG, UNK
     Route: 048
  30. HEPARIN [Concomitant]
     Dosage: 10000 U, PRIME
     Dates: start: 20070423, end: 20070423
  31. ANGIOMAX [Concomitant]
     Dosage: TITRATE
     Dates: start: 20070223, end: 20070223
  32. PAVULON [Concomitant]
     Dosage: 23 MG, UNK
     Route: 042
     Dates: start: 20070423, end: 20070423
  33. SODIUM BICARBONATE [Concomitant]
     Dosage: 50CC, PRIME
     Dates: start: 20070423, end: 20070423
  34. MANNITOL [Concomitant]
     Dosage: 50CC, PRIME
     Dates: start: 20070423, end: 20070423
  35. ZITHROMAX [Concomitant]
     Dosage: 250 MG, QD
     Route: 048
     Dates: start: 20070223
  36. XYLOCAINE [Concomitant]
     Dosage: 100 MG, UNK
     Route: 042
     Dates: start: 20070423
  37. GLUCOSE [Concomitant]
     Dosage: 180 MG, UNK
     Route: 042
     Dates: start: 20070423
  38. CALCIUM CHLORIDE DIHYDRATE [Concomitant]
     Dosage: 1 G, CARDIOPULMONARY BYPASS
     Dates: start: 20070423, end: 20070423
  39. ALBUTEROL SULFATE AUTOHALER [Concomitant]
     Dosage: TWO PUFFS, FOUR TIMES DAILY
  40. LASIX [Concomitant]
     Dosage: 80 MG, MORNING
     Route: 048
  41. LASIX [Concomitant]
     Dosage: 40 MG, QD
  42. XYLOCAINE [Concomitant]
     Dosage: 100 MG, CARDIOPULMONARY BYPASS
     Dates: start: 20070423, end: 20070423
  43. PROTAMINE SULFATE [Concomitant]
     Dosage: 350 MG, UNK
     Route: 042
     Dates: start: 20070423, end: 20070423
  44. MILRINONE [Concomitant]
     Dosage: TITRATE
     Route: 042
     Dates: start: 20070423
  45. AMIODARONE HCL [Concomitant]
     Dosage: 150 MG, UNK
     Route: 042
     Dates: start: 20070423

REACTIONS (15)
  - CEREBROVASCULAR ACCIDENT [None]
  - RENAL IMPAIRMENT [None]
  - CARDIAC DISORDER [None]
  - DEPRESSION [None]
  - ANHEDONIA [None]
  - ORGAN FAILURE [None]
  - UNEVALUABLE EVENT [None]
  - PAIN [None]
  - RENAL INJURY [None]
  - DEATH [None]
  - ANXIETY [None]
  - FEAR [None]
  - MYOCARDIAL INFARCTION [None]
  - RENAL FAILURE [None]
  - INJURY [None]
